FAERS Safety Report 7712822-X (Version None)
Quarter: 2011Q3

REPORT INFORMATION
  Report Type: 
  Country: None (occurrence: None)
  Receive Date: 20110826
  Receipt Date: 20110812
  Transmission Date: 20111222
  Serious: Yes (Other)
  Sender: FDA-Public Use
  Company Number: PHEH2011US01942

PATIENT
  Sex: Female

DRUGS (9)
  1. TEKTURNA [Suspect]
     Indication: BLOOD PRESSURE
     Dosage: 300 MG, QD
  2. PERCOCET [Concomitant]
     Dosage: UNK UKN, UNK
  3. BENTYL [Concomitant]
     Dosage: UNK UKN, UNK
  4. NEURONTIN [Concomitant]
     Dosage: UNK UKN, UNK
  5. ATENOLOL AND CHLORTHALIDONE [Suspect]
     Indication: BLOOD PRESSURE
     Dosage: 50/25 MG DAILY
  6. LIBRAX [Concomitant]
     Dosage: UNK UKN, UNK
  7. PRISTIQ [Concomitant]
     Indication: DEPRESSION
     Dosage: UNK UKN, UNK
  8. PROTONIX [Concomitant]
     Dosage: UNK UKN, UNK
  9. NAPROXEN [Concomitant]
     Dosage: UNK UKN, UNK

REACTIONS (4)
  - PAIN IN EXTREMITY [None]
  - MOBILITY DECREASED [None]
  - JOINT LOCK [None]
  - NERVE INJURY [None]
